FAERS Safety Report 9915298 (Version 2)
Quarter: 2014Q1

REPORT INFORMATION
  Report Type: Spontaneous
  Country: IT (occurrence: IT)
  Receive Date: 20140221
  Receipt Date: 20140224
  Transmission Date: 20141002
  Serious: Yes (Other)
  Sender: FDA-Public Use
  Company Number: IT-RANBAXY-2014RR-78329

PATIENT
  Age: 53 Year
  Sex: Female

DRUGS (1)
  1. PARACETAMOL [Suspect]
     Indication: PRODUCT USED FOR UNKNOWN INDICATION
     Dosage: 3 DOSAGE UNITS DAILY
     Route: 054
     Dates: start: 20131227, end: 20131227

REACTIONS (4)
  - Face oedema [Recovering/Resolving]
  - Medication error [Recovering/Resolving]
  - Oedema peripheral [Recovering/Resolving]
  - Urticaria [Recovering/Resolving]
